FAERS Safety Report 19903993 (Version 1)
Quarter: 2021Q4

REPORT INFORMATION
  Report Type: Spontaneous
  Country: JP (occurrence: JP)
  Receive Date: 20211001
  Receipt Date: 20211001
  Transmission Date: 20220303
  Serious: Yes (Hospitalization, Other)
  Sender: FDA-Public Use
  Company Number: JP-GSKNCCC-CASE-01316565_AE-50023

PATIENT
  Age: 21 Year
  Sex: Male

DRUGS (1)
  1. FLOLAN [Suspect]
     Active Substance: EPOPROSTENOL SODIUM
     Dosage: UNK
     Route: 041

REACTIONS (4)
  - Vascular device occlusion [Unknown]
  - Infusion site extravasation [Unknown]
  - Vasculitis [Unknown]
  - Pain [Unknown]
